FAERS Safety Report 23799609 (Version 3)
Quarter: 2024Q3

REPORT INFORMATION
  Report Type: Report from Study
  Country: CA (occurrence: CA)
  Receive Date: 20240430
  Receipt Date: 20240730
  Transmission Date: 20241017
  Serious: Yes (Hospitalization)
  Sender: SK LIFE SCIENCE
  Company Number: CA-SK LIFE SCIENCE, INC.-SKPVG-2024-000708

PATIENT

DRUGS (13)
  1. XCOPRI [Suspect]
     Active Substance: CENOBAMATE
     Indication: Epilepsy
     Dosage: 12.5 MILLIGRAM, DAILY
     Route: 048
     Dates: start: 20240310, end: 2024
  2. XCOPRI [Suspect]
     Active Substance: CENOBAMATE
     Dosage: 25 MILLIGRAM, DAILY
     Route: 048
     Dates: start: 2024, end: 2024
  3. XCOPRI [Suspect]
     Active Substance: CENOBAMATE
     Dosage: 50 MILLIGRAM, DAILY
     Route: 048
     Dates: start: 2024, end: 2024
  4. XCOPRI [Suspect]
     Active Substance: CENOBAMATE
     Dosage: 100 MILLIGRAM, DAILY
     Route: 048
     Dates: start: 2024, end: 2024
  5. XCOPRI [Suspect]
     Active Substance: CENOBAMATE
     Dosage: 150 MILLIGRAM, DAILY
     Route: 048
     Dates: start: 2024, end: 2024
  6. XCOPRI [Suspect]
     Active Substance: CENOBAMATE
     Dosage: 100 MILLIGRAM, DAILY
     Route: 048
     Dates: start: 2024, end: 2024
  7. XCOPRI [Suspect]
     Active Substance: CENOBAMATE
     Dosage: 25 MILLIGRAM, DAILY
     Route: 048
     Dates: start: 2024, end: 2024
  8. XCOPRI [Suspect]
     Active Substance: CENOBAMATE
     Dosage: 12.5 MILLIGRAM, DAILY
     Route: 048
     Dates: start: 2024, end: 20240709
  9. CLOBAZAM [Concomitant]
     Active Substance: CLOBAZAM
     Indication: Product used for unknown indication
     Dosage: 10 MG 3 TABS MORNING, 4 TABS EVENING;
     Route: 065
  10. LAMOTRIGINE [Concomitant]
     Active Substance: LAMOTRIGINE
     Indication: Product used for unknown indication
     Dosage: 100 MG 2 TABS MORNING, 2 TABS EVENING
     Route: 065
  11. RISPERIDONE [Concomitant]
     Active Substance: RISPERIDONE
     Indication: Product used for unknown indication
     Dosage: UNK
     Route: 065
  12. BANZEL [Concomitant]
     Active Substance: RUFINAMIDE
     Indication: Product used for unknown indication
     Dosage: 400 MG 3 TABS MORNING, 3 TABS EVENING;
     Route: 065
  13. TOPIRAMATE [Concomitant]
     Active Substance: TOPIRAMATE
     Indication: Product used for unknown indication
     Dosage: 100 MG 1 TAB MORNING, 1 TAB EVENING
     Route: 065

REACTIONS (4)
  - Seizure [Not Recovered/Not Resolved]
  - Off label use [Unknown]
  - Fatigue [Unknown]
  - Dysarthria [Unknown]

NARRATIVE: CASE EVENT DATE: 20240301
